FAERS Safety Report 5547257-1 (Version None)
Quarter: 2007Q4

REPORT INFORMATION
  Report Type: 
  Country: None (occurrence: None)
  Receive Date: 20071211
  Receipt Date: 20071203
  Transmission Date: 20080405
  Serious: Yes (Other)
  Sender: FDA-Public Use
  Company Number: B0497778A

PATIENT
  Age: 25 Year
  Sex: Male

DRUGS (4)
  1. PAXIL [Suspect]
     Indication: PANIC DISORDER
     Dosage: 30MG PER DAY
     Route: 048
     Dates: start: 20070516
  2. MEILAX [Concomitant]
     Route: 048
  3. GASMOTIN [Concomitant]
     Route: 048
  4. CHINESE MEDICINE [Concomitant]
     Route: 065

REACTIONS (2)
  - CONVULSION [None]
  - LOSS OF CONSCIOUSNESS [None]
